FAERS Safety Report 23885396 (Version 2)
Quarter: 2024Q2

REPORT INFORMATION
  Report Type: Spontaneous
  Country: CN (occurrence: CN)
  Receive Date: 20240522
  Receipt Date: 20240603
  Transmission Date: 20240716
  Serious: Yes (Life-Threatening, Other)
  Sender: FDA-Public Use
  Company Number: CN-PFIZER INC-PV202400066586

PATIENT
  Age: 55 Year
  Sex: Male
  Weight: 70 kg

DRUGS (3)
  1. METHYLPREDNISOLONE SODIUM SUCCINATE [Suspect]
     Active Substance: METHYLPREDNISOLONE SODIUM SUCCINATE
     Dosage: 40 MG
     Route: 042
     Dates: start: 20240515
  2. METHYLPREDNISOLONE SODIUM SUCCINATE [Suspect]
     Active Substance: METHYLPREDNISOLONE SODIUM SUCCINATE
     Dosage: 80 MG
     Route: 042
     Dates: start: 20240515
  3. DYPHYLLINE [Concomitant]
     Active Substance: DYPHYLLINE
     Dosage: 0.25 G
     Route: 042

REACTIONS (9)
  - Loss of consciousness [Recovered/Resolved]
  - Muscle rigidity [Recovering/Resolving]
  - Cyanosis [Recovering/Resolving]
  - Asthenia [Unknown]
  - Anaphylactic shock [Recovering/Resolving]
  - Irritability [Unknown]
  - Asphyxia [Unknown]
  - Anal incontinence [Unknown]
  - Diarrhoea [Unknown]

NARRATIVE: CASE EVENT DATE: 20240515
